FAERS Safety Report 6941547-3 (Version None)
Quarter: 2010Q3

REPORT INFORMATION
  Report Type: 
  Country: None (occurrence: None)
  Receive Date: 20100825
  Receipt Date: 20100818
  Transmission Date: 20110219
  Serious: Yes (Hospitalization)
  Sender: FDA-Public Use
  Company Number: US-US-EMD SERONO, INC.-7014780

PATIENT
  Sex: Female

DRUGS (4)
  1. REBIF [Suspect]
     Indication: MULTIPLE SCLEROSIS
     Route: 058
     Dates: start: 20070906, end: 20080118
  2. SYNTHROID [Concomitant]
  3. MICARDIS [Concomitant]
     Indication: HYPERTENSION
  4. NEBULIZER TREATMENTS [Concomitant]
     Indication: ASTHMA

REACTIONS (1)
  - PNEUMONIA MYCOPLASMAL [None]
